FAERS Safety Report 9441453 (Version 3)
Quarter: 2013Q3

REPORT INFORMATION
  Report Type: Spontaneous
  Country: DE (occurrence: DE)
  Receive Date: 20130805
  Receipt Date: 20130911
  Transmission Date: 20140515
  Serious: Yes (Other)
  Sender: FDA-Public Use
  Company Number: DE-PFIZER INC-2013224053

PATIENT
  Sex: Female

DRUGS (1)
  1. FASTJEKT [Suspect]
     Dosage: UNK
     Dates: start: 20130726, end: 20130726

REACTIONS (5)
  - Accidental exposure to product [Recovered/Resolved]
  - Skeletal injury [Unknown]
  - Device malfunction [Recovered/Resolved]
  - Bone lesion [Recovered/Resolved]
  - Expired drug administered [Recovered/Resolved]
